FAERS Safety Report 6336935-2 (Version None)
Quarter: 2009Q3

REPORT INFORMATION
  Report Type: 
  Country: None (occurrence: None)
  Receive Date: 20090901
  Receipt Date: 20090827
  Transmission Date: 20100115
  Serious: Yes (Other)
  Sender: FDA-Public Use
  Company Number: LB-ROCHE-652943

PATIENT
  Age: 53 Year
  Sex: Male

DRUGS (3)
  1. CAPECITABINE [Suspect]
     Route: 048
     Dates: end: 20090317
  2. BEVACIZUMAB [Suspect]
     Route: 042
     Dates: start: 20081011, end: 20090701
  3. ELOXATIN [Suspect]
     Route: 041
     Dates: start: 20090317, end: 20090317

REACTIONS (1)
  - DISEASE PROGRESSION [None]
